FAERS Safety Report 5643250-9 (Version None)
Quarter: 2008Q1

REPORT INFORMATION
  Report Type: 
  Country: None (occurrence: None)
  Receive Date: 20080228
  Receipt Date: 20080222
  Transmission Date: 20080703
  Serious: Yes (Other)
  Sender: FDA-Public Use
  Company Number: CA-ALLERGAN-0802221US

PATIENT
  Sex: Male

DRUGS (3)
  1. LUMIGAN [Suspect]
     Indication: DRUG USE FOR UNKNOWN INDICATION
  2. COMBIGAN [Suspect]
     Indication: DRUG USE FOR UNKNOWN INDICATION
     Dosage: UNK, BID
  3. LASIX [Concomitant]
     Dosage: 40 MG, QD

REACTIONS (2)
  - ASTHENIA [None]
  - MUSCULAR WEAKNESS [None]
